FAERS Safety Report 6832707-0 (Version None)
Quarter: 2010Q3

REPORT INFORMATION
  Report Type: 
  Country: None (occurrence: None)
  Receive Date: 20100712
  Receipt Date: 20070615
  Transmission Date: 20110219
  Serious: No
  Sender: FDA-Public Use
  Company Number: US-PFIZER INC-2007020654

PATIENT
  Sex: Female
  Weight: 95.25 kg

DRUGS (4)
  1. CHANTIX [Suspect]
     Indication: SMOKING CESSATION THERAPY
     Route: 048
     Dates: start: 20070301
  2. DEPAKOTE [Concomitant]
  3. REMERON [Concomitant]
  4. NEXIUM [Concomitant]

REACTIONS (2)
  - RASH [None]
  - STOMATITIS [None]
